FAERS Safety Report 8219651-1 (Version None)
Quarter: 2012Q1

REPORT INFORMATION
  Report Type: 
  Country: None (occurrence: None)
  Receive Date: 20120319
  Receipt Date: 20120306
  Transmission Date: 20120608
  Serious: Yes (Death, Hospitalization)
  Sender: FDA-Public Use
  Company Number: DE-ASTRAZENECA-2012SE17457

PATIENT
  Age: 48 Year
  Sex: Female

DRUGS (8)
  1. FOSCARNET [Suspect]
     Indication: CYTOMEGALOVIRUS INFECTION
     Route: 042
  2. ATG FRESENIUS [Concomitant]
  3. GANCICLOVIR [Concomitant]
     Route: 042
  4. PREDNISOLONE [Concomitant]
  5. GANCICLOVIR [Concomitant]
     Route: 048
  6. MYCOPHENOLATE MOFETIL [Concomitant]
     Route: 048
  7. GANCICLOVIR [Concomitant]
     Route: 042
  8. GANCICLOVIR [Concomitant]
     Route: 042

REACTIONS (3)
  - ENCEPHALITIS CYTOMEGALOVIRUS [None]
  - NEPHROPATHY TOXIC [None]
  - CYTOMEGALOVIRUS CHORIORETINITIS [None]
